FAERS Safety Report 17159200 (Version 1)
Quarter: 2019Q4

REPORT INFORMATION
  Report Type: Spontaneous
  Country: US (occurrence: US)
  Receive Date: 20191216
  Receipt Date: 20191216
  Transmission Date: 20200122
  Serious: Yes (Other)
  Sender: FDA-Public Use
  Company Number: US-PFIZER INC-2019537301

PATIENT
  Age: 31 Year
  Sex: Male

DRUGS (1)
  1. EFFEXOR XR [Suspect]
     Active Substance: VENLAFAXINE HYDROCHLORIDE
     Dosage: 150 MG, UNK

REACTIONS (7)
  - Suicidal ideation [Unknown]
  - Suicide attempt [Unknown]
  - Anxiety [Unknown]
  - Memory impairment [Unknown]
  - Depression [Unknown]
  - Intentional product misuse [Unknown]
  - Agitation [Unknown]
